FAERS Safety Report 12695408 (Version 2)
Quarter: 2016Q3

REPORT INFORMATION
  Report Type: Spontaneous
  Country: US (occurrence: US)
  Receive Date: 20160829
  Receipt Date: 20160923
  Transmission Date: 20161109
  Serious: No
  Sender: FDA-Public Use
  Company Number: US-PFIZER INC-2016382808

PATIENT
  Age: 64 Year
  Sex: Female

DRUGS (3)
  1. LOMOTIL [Suspect]
     Active Substance: ATROPINE SULFATE\DIPHENOXYLATE HYDROCHLORIDE
     Indication: IRRITABLE BOWEL SYNDROME
     Dosage: UNK
     Dates: start: 1996
  2. LOMOTIL [Suspect]
     Active Substance: ATROPINE SULFATE\DIPHENOXYLATE HYDROCHLORIDE
     Dosage: (2.5-0.025 MG) 1X/DAY
     Dates: start: 1994
  3. VIBERZI [Concomitant]
     Active Substance: ELUXADOLINE
     Dosage: UNK, 1X/DAY
     Dates: start: 201607

REACTIONS (3)
  - Product use issue [Unknown]
  - Intentional product misuse [Recovered/Resolved]
  - Drug effect decreased [Recovered/Resolved]

NARRATIVE: CASE EVENT DATE: 2014
